FAERS Safety Report 7962008 (Version 3)
Quarter: 2013Q2

REPORT INFORMATION
  Report Type: Report from Study
  Country: MX (occurrence: MX)
  Receive Date: 20110526
  Receipt Date: 20130603
  Transmission Date: 20140414
  Serious: Yes (Other)
  Sender: FDA-Public Use
  Company Number: PHHY2011MX42790

PATIENT
  Age: 85 Year
  Sex: Male

DRUGS (3)
  1. EXFORGE [Suspect]
     Indication: HYPERTENSION
     Dosage: 1 DF, 160 MG VALS AND 10 MG AMLO
     Dates: start: 20110202, end: 201103
  2. ANTICOAGULANTS [Concomitant]
  3. ANTIHYPERTENSIVES [Concomitant]

REACTIONS (6)
  - Face injury [Recovered/Resolved]
  - Fall [Recovered/Resolved]
  - Head injury [Recovered/Resolved]
  - Wound [Recovered/Resolved]
  - Epistaxis [Recovered/Resolved]
  - Nasal inflammation [Recovered/Resolved]
